FAERS Safety Report 6206166-5 (Version None)
Quarter: 2009Q2

REPORT INFORMATION
  Report Type: 
  Country: None (occurrence: None)
  Receive Date: 20090528
  Receipt Date: 20080911
  Transmission Date: 20091009
  Serious: No
  Sender: FDA-Public Use
  Company Number: US-KINGPHARMUSA00001-K200801098

PATIENT
  Sex: Female
  Weight: 64.399 kg

DRUGS (3)
  1. AVINZA [Suspect]
     Indication: PAIN
     Dosage: 60 MG, QD
     Route: 048
     Dates: start: 20080101
  2. ACETAMINOPHEN [Concomitant]
     Dosage: UNK, PRN
     Route: 048
  3. NEURONTIN [Concomitant]
     Dosage: UNK, UNK

REACTIONS (6)
  - ABDOMINAL PAIN UPPER [None]
  - CHILLS [None]
  - DIARRHOEA [None]
  - PAIN [None]
  - RHINORRHOEA [None]
  - WITHDRAWAL SYNDROME [None]
